FAERS Safety Report 20020734 (Version 1)
Quarter: 2021Q4

REPORT INFORMATION
  Report Type: Spontaneous
  Country: None (occurrence: US)
  Receive Date: 20211101
  Receipt Date: 20211101
  Transmission Date: 20220303
  Serious: Yes (Hospitalization, Other)
  Sender: FDA-Public Use
  Company Number: US-Acella Pharmaceuticals, LLC-2121293

PATIENT
  Age: 20 Year
  Sex: Male

DRUGS (1)
  1. BROMPHENIRAMINE MAL, PSEUDOEPHEDRINE HCL, AND DEXTROMETHORPHAN HBR [Suspect]
     Active Substance: BROMPHENIRAMINE MALEATE\DEXTROMETHORPHAN HYDROBROMIDE\PSEUDOEPHEDRINE HYDROCHLORIDE
     Indication: Product used for unknown indication
     Route: 065

REACTIONS (9)
  - Acute psychosis [Unknown]
  - Agitation [Unknown]
  - Mydriasis [Unknown]
  - Mood swings [Unknown]
  - Paranoia [Unknown]
  - Hallucination [Unknown]
  - Memory impairment [Unknown]
  - Disturbance in attention [Unknown]
  - Psychomotor hyperactivity [Unknown]
